FAERS Safety Report 7592852-1 (Version None)
Quarter: 2011Q3

REPORT INFORMATION
  Report Type: 
  Country: None (occurrence: None)
  Receive Date: 20110706
  Receipt Date: 20110630
  Transmission Date: 20111222
  Serious: Yes (Other)
  Sender: FDA-Public Use
  Company Number: US-PFIZER INC-US-WYE-H03802608

PATIENT
  Sex: Female
  Weight: 101 kg

DRUGS (4)
  1. SYNTHROID [Concomitant]
     Indication: THYROID DISORDER
     Dosage: UNK
  2. CARDIZEM CD [Concomitant]
     Indication: BLOOD PRESSURE
     Dosage: UNK
  3. PREMPRO [Suspect]
     Indication: HORMONE REPLACEMENT THERAPY
     Dosage: 0.625/2.5MG
     Route: 048
     Dates: start: 19900101, end: 20020101
  4. MAXZIDE [Concomitant]
     Indication: DIURETIC THERAPY
     Dosage: UNK

REACTIONS (4)
  - BREAST CANCER FEMALE [None]
  - RENAL FAILURE [None]
  - PAIN [None]
  - NERVE INJURY [None]
